FAERS Safety Report 6228853-5 (Version None)
Quarter: 2009Q2

REPORT INFORMATION
  Report Type: 
  Country: None (occurrence: None)
  Receive Date: 20090615
  Receipt Date: 20080204
  Transmission Date: 20091009
  Serious: No
  Sender: FDA-Public Use
  Company Number: US-ASTRAZENECA-2006UW06191

PATIENT
  Sex: Female

DRUGS (11)
  1. SEROQUEL [Suspect]
     Dosage: 25 MG TWO TABLETS AT NIGHT
     Route: 048
     Dates: start: 20020408
  2. SEROQUEL [Suspect]
     Dosage: 100 MG - 200 MG IN TITRATING DOSE
     Route: 048
     Dates: start: 20020617
  3. SEROQUEL [Suspect]
     Dosage: 100 MG ONE TABLET IN MORNING AND 200 MG ONE TABLET AT NIGHT
     Route: 048
     Dates: start: 20020924
  4. SEROQUEL [Suspect]
     Route: 048
     Dates: start: 20021118
  5. SEROQUEL [Suspect]
     Route: 048
     Dates: start: 20021212
  6. ZYPREXA [Suspect]
  7. RISPERDAL [Suspect]
     Dosage: 2 MG - 6 MG
     Dates: start: 20020408
  8. RANITIDINE [Concomitant]
     Dosage: 150 MG - 300 MG TWO TIMES A DAY
     Route: 048
     Dates: start: 20020508
  9. LEXAPRO [Concomitant]
     Route: 048
     Dates: start: 20030807
  10. TRAZODONE HCL [Concomitant]
     Dosage: 25 MG - 50 MG AT NIGHT
     Route: 048
     Dates: start: 20021212
  11. GLUCOPHAGE [Concomitant]
     Route: 048
     Dates: start: 20031013

REACTIONS (1)
  - DIABETES MELLITUS [None]
